FAERS Safety Report 8429909-9 (Version None)
Quarter: 2012Q2

REPORT INFORMATION
  Report Type: 
  Country: None (occurrence: None)
  Receive Date: 20120612
  Receipt Date: 20120525
  Transmission Date: 20120825
  Serious: No
  Sender: FDA-Public Use
  Company Number: US-ASTRAZENECA-2012SE33929

PATIENT
  Age: 75 Year
  Sex: Male
  Weight: 90.3 kg

DRUGS (10)
  1. SEROQUEL [Suspect]
     Route: 048
  2. DILTIAZEM [Concomitant]
     Indication: BLOOD PRESSURE ABNORMAL
  3. ASPIRIN [Concomitant]
  4. PRAVASTATIN [Concomitant]
     Indication: BLOOD CHOLESTEROL ABNORMAL
  5. ZANTAC [Concomitant]
     Indication: GASTRIC DISORDER
  6. SEROQUEL [Suspect]
     Indication: DEPRESSION
     Route: 048
     Dates: start: 20111101
  7. ZOLOFT [Concomitant]
  8. NEXIUM [Suspect]
     Indication: GASTRIC DISORDER
     Route: 048
  9. THYROID PILL [Concomitant]
  10. CETIRIZINE HCL [Concomitant]
     Indication: MULTIPLE ALLERGIES

REACTIONS (5)
  - ADVERSE EVENT [None]
  - OFF LABEL USE [None]
  - INSOMNIA [None]
  - FEELING HOT [None]
  - HYPERHIDROSIS [None]
